FAERS Safety Report 8027603-X (Version None)
Quarter: 2012Q1

REPORT INFORMATION
  Report Type: 
  Country: None (occurrence: None)
  Receive Date: 20120105
  Receipt Date: 20120105
  Transmission Date: 20120608
  Serious: Yes (Other)
  Sender: FDA-Public Use
  Company Number: None

PATIENT
  Age: 36 Year
  Sex: Female
  Weight: 93.1 kg

DRUGS (1)
  1. BUPROPION HYDROCHLORIDE [Suspect]
     Dosage: MG BID PO
     Route: 048
     Dates: start: 20111208

REACTIONS (1)
  - AGITATION [None]
